FAERS Safety Report 8343498-9 (Version None)
Quarter: 2012Q2

REPORT INFORMATION
  Report Type: 
  Country: None (occurrence: None)
  Receive Date: 20120503
  Receipt Date: 20120503
  Transmission Date: 20120825
  Serious: Yes (Hospitalization)
  Sender: FDA-Public Use
  Company Number: None

PATIENT
  Sex: Female
  Weight: 101.6 kg

DRUGS (11)
  1. CISPLATIN [Suspect]
     Dosage: 155 MG
     Dates: end: 20120424
  2. XANAX [Concomitant]
  3. ASMANEX TWISTHALER [Concomitant]
  4. PROTONIX [Concomitant]
  5. LOPRESSOR [Concomitant]
  6. TAXOTERE [Suspect]
     Dosage: 155 MG
     Dates: end: 20120424
  7. FLAGYL [Concomitant]
  8. PERCOCET [Concomitant]
  9. IMODIUM [Concomitant]
  10. MORPHINE [Concomitant]
  11. VENTOLIN [Concomitant]

REACTIONS (8)
  - TREATMENT NONCOMPLIANCE [None]
  - DEHYDRATION [None]
  - CLOSTRIDIAL INFECTION [None]
  - VOMITING [None]
  - DIARRHOEA [None]
  - FEELING ABNORMAL [None]
  - COLITIS [None]
  - ABDOMINAL PAIN [None]
